FAERS Safety Report 7228201-8 (Version None)
Quarter: 2011Q1

REPORT INFORMATION
  Report Type: 
  Country: None (occurrence: None)
  Receive Date: 20110114
  Receipt Date: 20101229
  Transmission Date: 20110831
  Serious: No
  Sender: FDA-Public Use
  Company Number: US-B.I. PHARMACEUTICALS,INC./RIDGEFIELD-2010-BP-13560BP

PATIENT
  Sex: Female

DRUGS (9)
  1. SYMBICORT [Concomitant]
  2. PANTOPRAZOLE [Concomitant]
  3. LEXAPRO [Concomitant]
  4. NORVASC [Concomitant]
  5. LYRICA [Concomitant]
  6. VITAMIN D [Concomitant]
  7. HYDROCHLOROTHIAZIDE [Concomitant]
  8. SPIRIVA [Suspect]
     Indication: CHRONIC OBSTRUCTIVE PULMONARY DISEASE
  9. SYNTHROID [Concomitant]

REACTIONS (1)
  - DRUG INEFFECTIVE [None]
